FAERS Safety Report 5101612-2 (Version None)
Quarter: 2006Q3

REPORT INFORMATION
  Report Type: 
  Country: None (occurrence: None)
  Receive Date: 20060731
  Receipt Date: 20060523
  Transmission Date: 20061208
  Serious: No
  Sender: FDA-Public Use
  Company Number: 2006PV014329

PATIENT
  Age: 67 Year
  Sex: Female
  Weight: 111.1313 kg

DRUGS (3)
  1. BYETTA [Suspect]
     Indication: DIABETES MELLITUS NON-INSULIN-DEPENDENT
     Dosage: 5 MCG;BID; SC
     Route: 058
     Dates: start: 20060429
  2. CIPROFLOXACIN HCL [Suspect]
     Indication: CYSTITIS
     Dosage: 1 DF; BID;
  3. CIPROFLOXACIN HCL [Concomitant]

REACTIONS (4)
  - CONSTIPATION [None]
  - DECREASED APPETITE [None]
  - DRUG INEFFECTIVE FOR UNAPPROVED INDICATION [None]
  - NAUSEA [None]
